FAERS Safety Report 7595238-9 (Version None)
Quarter: 2011Q3

REPORT INFORMATION
  Report Type: 
  Country: None (occurrence: None)
  Receive Date: 20110707
  Receipt Date: 20110705
  Transmission Date: 20111222
  Serious: Yes (Other)
  Sender: FDA-Public Use
  Company Number: GB-TEVA-283358ISR

PATIENT
  Age: 51 Year
  Sex: Male

DRUGS (2)
  1. FENOFIBRATE [Interacting]
  2. PRAVASTATIN [Suspect]

REACTIONS (2)
  - DRUG INTERACTION [None]
  - HIGH DENSITY LIPOPROTEIN DECREASED [None]
